FAERS Safety Report 9516150 (Version 1)
Quarter: 2013Q1

REPORT INFORMATION
  Report Type: Spontaneous
  Country: US (occurrence: None)
  Receive Date: 20130305
  Receipt Date: 20130305
  Transmission Date: 20140127
  Serious: Yes (Other)
  Sender: FDA-Public Use
  Company Number: 163-21880-12120193

PATIENT
  Age: 65 Year
  Sex: Female
  Weight: 56.25 kg

DRUGS (9)
  1. REVLIMID [Suspect]
     Indication: PLASMA CELL MYELOMA
     Dosage: 25 MG, 1 IN 1 D, PO
     Route: 048
     Dates: start: 201007, end: 2010
  2. ACIDOPHILUS (LACTOBACILLUS ACIDOPHILUS) [Concomitant]
  3. ACYCLOVIR (ACICLOVIR) (ACICLOVIR) [Concomitant]
  4. CALCIUM CITRATE-VITAMIN D (CALCIUM CITRATE W/COLECALCIFEROL) [Concomitant]
  5. LEXAPRO (ESCITALOPRAM OXALATE) [Concomitant]
  6. VITAMINS [Concomitant]
  7. SIMVASTATIN (SIMVASTATIN) [Concomitant]
  8. VITAMIN D (ERGOCALCIFEROL) [Concomitant]
  9. ZOMETA (ZOLEDRONIC ACID) [Concomitant]

REACTIONS (1)
  - Dry skin [None]
